FAERS Safety Report 5569000-2 (Version None)
Quarter: 2007Q4

REPORT INFORMATION
  Report Type: 
  Country: None (occurrence: None)
  Receive Date: 20071220
  Receipt Date: 20070502
  Transmission Date: 20080405
  Serious: No
  Sender: FDA-Public Use
  Company Number: A0649726A

PATIENT
  Age: 50 Year
  Sex: Male

DRUGS (3)
  1. AVODART [Suspect]
     Indication: BENIGN PROSTATIC HYPERPLASIA
     Dosage: .5MG PER DAY
     Route: 048
  2. FIORICET [Concomitant]
  3. TRAMADOL HCL [Concomitant]

REACTIONS (1)
  - DRUG INEFFECTIVE [None]
